FAERS Safety Report 6574102-8 (Version None)
Quarter: 2010Q1

REPORT INFORMATION
  Report Type: 
  Country: None (occurrence: None)
  Receive Date: 20100208
  Receipt Date: 20100121
  Transmission Date: 20100710
  Serious: Yes (Other)
  Sender: FDA-Public Use
  Company Number: US-BAYER-200943706NA

PATIENT
  Age: 75 Year
  Sex: Male
  Weight: 82 kg

DRUGS (20)
  1. MAGNEVIST [Suspect]
     Indication: NUCLEAR MAGNETIC RESONANCE IMAGING
     Dosage: AS USED: 40 ML
     Route: 042
     Dates: start: 20060710, end: 20060710
  2. MAGNEVIST [Suspect]
     Dosage: AS USED: 20 ML
     Route: 042
     Dates: start: 20060713, end: 20060713
  3. MAGNEVIST [Suspect]
     Dosage: AS USED: 20 ML
     Route: 042
     Dates: start: 20061214, end: 20061214
  4. MAGNEVIST [Suspect]
     Dosage: AS USED: 40 ML
     Route: 042
     Dates: start: 20061220, end: 20061220
  5. MAGNEVIST [Suspect]
     Route: 042
     Dates: start: 20061224, end: 20061224
  6. MAGNEVIST [Suspect]
     Dosage: AS USED: 40 ML
     Route: 042
     Dates: start: 20061219, end: 20061219
  7. MAGNEVIST [Suspect]
     Dates: start: 20061122, end: 20061122
  8. OMNISCAN [Suspect]
     Indication: NUCLEAR MAGNETIC RESONANCE IMAGING
  9. OPTIMARK [Suspect]
     Indication: NUCLEAR MAGNETIC RESONANCE IMAGING
  10. MULTIHANCE [Suspect]
     Indication: NUCLEAR MAGNETIC RESONANCE IMAGING
  11. PROHANCE [Suspect]
     Indication: NUCLEAR MAGNETIC RESONANCE IMAGING
  12. UNSPECIFIED GADOLINIUM BASED CONTRAST AGENT [Suspect]
     Indication: NUCLEAR MAGNETIC RESONANCE IMAGING
  13. CALCIUM CARBONATE [Concomitant]
  14. EPOETIN ALFA [Concomitant]
  15. CELEXA [Concomitant]
  16. CYANOCOBALAMIN [Concomitant]
  17. GABAPENTIN [Concomitant]
  18. M.V.I. [Concomitant]
  19. FOLIC ACID [Concomitant]
  20. LISINOPRIL [Concomitant]

REACTIONS (14)
  - ERYTHEMA [None]
  - HYPOAESTHESIA [None]
  - JOINT RANGE OF MOTION DECREASED [None]
  - JOINT STIFFNESS [None]
  - MUSCULAR WEAKNESS [None]
  - MUSCULOSKELETAL STIFFNESS [None]
  - NEPHROGENIC SYSTEMIC FIBROSIS [None]
  - OEDEMA [None]
  - OEDEMA PERIPHERAL [None]
  - PAIN [None]
  - SKIN DISCOLOURATION [None]
  - SKIN HYPERTROPHY [None]
  - SKIN INDURATION [None]
  - SKIN TIGHTNESS [None]
